APPROVED DRUG PRODUCT: PACLITAXEL
Active Ingredient: PACLITAXEL
Strength: 6MG/ML
Dosage Form/Route: INJECTABLE;INJECTION
Application: A075436 | Product #001
Applicant: ACCORD HEALTHCARE INC
Approved: Nov 12, 2004 | RLD: No | RS: No | Type: DISCN